FAERS Safety Report 13535092 (Version 2)
Quarter: 2017Q2

REPORT INFORMATION
  Report Type: Spontaneous
  Country: ES (occurrence: ES)
  Receive Date: 20170511
  Receipt Date: 20170517
  Transmission Date: 20170830
  Serious: No
  Sender: FDA-Public Use
  Company Number: ES-ROCHE-1933650

PATIENT
  Age: 44 Year
  Sex: Female

DRUGS (2)
  1. AVASTIN [Suspect]
     Active Substance: BEVACIZUMAB
     Indication: LUNG CANCER METASTATIC
     Dosage: 600 MG D1 AND D15 EVERY 28 DAYS
     Route: 065
     Dates: start: 20170228
  2. PACLITAXEL. [Suspect]
     Active Substance: PACLITAXEL
     Indication: LUNG CANCER METASTATIC
     Dosage: 138 MG D1, D8 AND D15 EVERY 28 DAYS
     Route: 065
     Dates: start: 20170228

REACTIONS (1)
  - Pulmonary cavitation [Unknown]
